FAERS Safety Report 7973475-9 (Version None)
Quarter: 2011Q4

REPORT INFORMATION
  Report Type: 
  Country: None (occurrence: None)
  Receive Date: 20111213
  Receipt Date: 20111206
  Transmission Date: 20120403
  Serious: Yes (Other)
  Sender: FDA-Public Use
  Company Number: US-AMGEN-USASP2011065114

PATIENT
  Sex: Female
  Weight: 100 kg

DRUGS (10)
  1. LANTUS [Concomitant]
  2. ZINC [Concomitant]
  3. PLAVIX [Concomitant]
  4. NORVASC [Concomitant]
  5. ACTOS [Concomitant]
  6. ACCUPRIL [Concomitant]
  7. EPOGEN [Suspect]
     Indication: RENAL FAILURE CHRONIC
     Dosage: UNK
     Dates: start: 20080101
  8. EPOGEN [Suspect]
     Dosage: 28000 IU, 3 TIMES/WK
  9. ZOCOR [Concomitant]
  10. LORTAB [Concomitant]
     Dosage: 28000 IU, 3 TIMES/WK

REACTIONS (2)
  - THERAPEUTIC RESPONSE DECREASED [None]
  - APLASIA PURE RED CELL [None]
